FAERS Safety Report 17088694 (Version 2)
Quarter: 2019Q4

REPORT INFORMATION
  Report Type: Report from Study
  Country: US (occurrence: US)
  Receive Date: 20191128
  Receipt Date: 20191219
  Transmission Date: 20200122
  Serious: Yes (Hospitalization, Other)
  Sender: FDA-Public Use
  Company Number: US-ASPEN-GLO2019US012451

PATIENT
  Age: 6 Year
  Sex: Male
  Weight: 25.3 kg

DRUGS (9)
  1. DEXAMETHASONE. [Suspect]
     Active Substance: DEXAMETHASONE
     Indication: LEUKAEMIA
     Dosage: 4 MG, BID
     Route: 048
     Dates: start: 20190909
  2. PEGASPARGASE [Suspect]
     Active Substance: PEGASPARGASE
     Indication: LEUKAEMIA
     Dosage: 2100 IU, 1 DOSAGE TOTAL
     Route: 042
     Dates: start: 20190912
  3. TIOGUANINE [Suspect]
     Active Substance: THIOGUANINE ANHYDROUS
     Indication: LEUKAEMIA
     Dosage: 60 MG, QD
     Route: 048
     Dates: start: 20191014
  4. INCB018424 [Suspect]
     Active Substance: RUXOLITINIB
     Indication: LEUKAEMIA
     Dosage: 45 MG, BID
     Route: 048
     Dates: start: 20190909
  5. DOXORUBICIN [Suspect]
     Active Substance: DOXORUBICIN
     Indication: LEUKAEMIA
     Dosage: 22 MG AT INDICATED TIME POINTS
     Route: 042
     Dates: start: 20190916
  6. CYCLOPHOSPHAMIDE. [Suspect]
     Active Substance: CYCLOPHOSPHAMIDE
     Indication: LEUKAEMIA
     Dosage: 860 MG, ONCE AT INDICATED TIME POINTS
     Route: 042
     Dates: start: 20191014
  7. CYTARABINE. [Suspect]
     Active Substance: CYTARABINE
     Indication: LEUKAEMIA
     Dosage: 64 MG, QD AT INDICATED TIME POINTS
     Route: 042
     Dates: start: 20191014
  8. VINCRISTINE [Suspect]
     Active Substance: VINCRISTINE
     Indication: LEUKAEMIA
     Dosage: 1.3 MG, ONCE AT INDICATED TIME POINTS
     Route: 042
     Dates: start: 20190909
  9. METHOTREXATE. [Suspect]
     Active Substance: METHOTREXATE
     Indication: LEUKAEMIA
     Dosage: 12 MG, ONCE AT INDICATED TIME POINTS
     Route: 037
     Dates: start: 20190909

REACTIONS (1)
  - Febrile neutropenia [Recovered/Resolved]

NARRATIVE: CASE EVENT DATE: 20191027
